FAERS Safety Report 16644175 (Version 2)
Quarter: 2020Q4

REPORT INFORMATION
  Report Type: Spontaneous
  Country: CH (occurrence: CH)
  Receive Date: 20190729
  Receipt Date: 20201127
  Transmission Date: 20210113
  Serious: Yes (Hospitalization, Other)
  Sender: FDA-Public Use
  Company Number: CH-SA-2019SA200039

PATIENT

DRUGS (29)
  1. FLUCONAZOLE. [Concomitant]
     Active Substance: FLUCONAZOLE
     Dosage: UNK
     Dates: start: 20190708, end: 20190711
  2. PIPERACILLIN AND TAZOBACTAM [Concomitant]
     Active Substance: PIPERACILLIN SODIUM\TAZOBACTAM SODIUM
     Dosage: UNK
     Dates: end: 20190714
  3. MYCOSTATINE [Concomitant]
     Active Substance: NYSTATIN
     Dosage: UNK
  4. PASPERTIN [METOCLOPRAMIDE;POLIDOCANOL] [Concomitant]
     Dosage: AS NECESSARY
  5. CASPOFUNGINE [CASPOFUNGIN] [Concomitant]
     Dosage: UNK
     Dates: start: 20190711, end: 2019
  6. IMIPENEM [Concomitant]
     Active Substance: IMIPENEM
     Dosage: UNK
     Dates: start: 20190714, end: 2019
  7. RITONAVIR. [Interacting]
     Active Substance: RITONAVIR
     Dosage: 100 MG, QD
     Dates: end: 20190708
  8. TIORFAN [Concomitant]
     Active Substance: RACECADOTRIL
     Dosage: UNK
  9. BUSCOPAN [Concomitant]
     Active Substance: BUTYLSCOPOLAMINE BROMIDE
     Dosage: UNK, PRN
  10. BUSCOPAN [Concomitant]
     Active Substance: BUTYLSCOPOLAMINE BROMIDE
     Dosage: AS NECESSARY
  11. IMODIUM [Concomitant]
     Active Substance: LOPERAMIDE HYDROCHLORIDE
     Dosage: AS NECESSARY
  12. VANCOMYCINE [VANCOMYCIN] [Concomitant]
     Active Substance: VANCOMYCIN
     Dosage: UNK
  13. ASPIRIN CARDIO [Concomitant]
     Active Substance: ASPIRIN
     Dosage: UNK
  14. NEXIUM MUPS [ESOMEPRAZOLE MAGNESIUM] [Concomitant]
     Active Substance: ESOMEPRAZOLE MAGNESIUM
     Dosage: UNK
  15. IMODIUM [Concomitant]
     Active Substance: LOPERAMIDE HYDROCHLORIDE
     Dosage: AS NECESSARY
  16. TAXOTERE [Suspect]
     Active Substance: DOCETAXEL
     Dosage: 100 MG
     Dates: start: 20190702, end: 20190702
  17. DARUNAVIR [Interacting]
     Active Substance: DARUNAVIR
     Dosage: 600 MG
     Route: 048
  18. BICTEGRAVIR;EMTRICITABINE;TENOFOVIR [Interacting]
     Active Substance: BICTEGRAVIR\EMTRICITABINE\TENOFOVIR ALAFENAMIDE
     Dosage: 1 DF, QD
  19. PIPERACILLIN AND TAZOBACTAM [Concomitant]
     Active Substance: PIPERACILLIN SODIUM\TAZOBACTAM SODIUM
     Dosage: UNK
  20. DAFALGAN [Concomitant]
     Active Substance: ACETAMINOPHEN
     Dosage: AS NECESSARY
  21. PASPERTIN [METOCLOPRAMIDE;POLIDOCANOL] [Concomitant]
     Dosage: AS NECESSARY
  22. VANCOMYCINE [VANCOMYCIN] [Concomitant]
     Active Substance: VANCOMYCIN
     Dosage: UNK
     Dates: end: 20190714
  23. FILGRASTIM [Concomitant]
     Active Substance: FILGRASTIM
     Dosage: UNK
  24. SCHERIPROCT [CINCHOCAINE HYDROCHLORIDE;PREDNISOLONE CAPROATE] [Concomitant]
     Dosage: UNK
  25. DAFALGAN [Concomitant]
     Active Substance: ACETAMINOPHEN
     Dosage: AS NECESSARY
  26. SCHERIPROCT [CINCHOCAINE HYDROCHLORIDE;PREDNISOLONE CAPROATE] [Concomitant]
     Dosage: UNK
  27. OXALIPLATIN. [Interacting]
     Active Substance: OXALIPLATIN
     Dosage: 170 MG
     Route: 041
     Dates: start: 20190702, end: 20190702
  28. FLUCONAZOLE. [Concomitant]
     Active Substance: FLUCONAZOLE
     Dosage: UNK
  29. FLUOROURACIL. [Interacting]
     Active Substance: FLUOROURACIL
     Dosage: 4000 MG
     Route: 041
     Dates: start: 20190702, end: 20190702

REACTIONS (6)
  - Oral disorder [Recovered/Resolved]
  - Drug interaction [Unknown]
  - Febrile neutropenia [Recovered/Resolved]
  - Odynophagia [Recovering/Resolving]
  - Abdominal distension [Recovered/Resolved]
  - Diarrhoea [Recovered/Resolved]

NARRATIVE: CASE EVENT DATE: 20190703
